FAERS Safety Report 15695835 (Version 2)
Quarter: 2019Q1

REPORT INFORMATION
  Report Type: Report from Study
  Country: CA (occurrence: CA)
  Receive Date: 20181206
  Receipt Date: 20190116
  Transmission Date: 20190417
  Serious: Yes (Hospitalization)
  Sender: FDA-Public Use
  Company Number: CA-BIOGEN-2018BI00666495

PATIENT
  Age: 57 Year
  Sex: Male

DRUGS (1)
  1. AVONEX [Suspect]
     Active Substance: INTERFERON BETA-1A
     Indication: MULTIPLE SCLEROSIS
     Route: 030
     Dates: start: 20051109

REACTIONS (4)
  - Influenza [Recovered/Resolved]
  - Myocardial infarction [Recovered/Resolved]
  - Intentional product misuse [Unknown]
  - Depression [Unknown]

NARRATIVE: CASE EVENT DATE: 201712
